FAERS Safety Report 6326950-7 (Version None)
Quarter: 2009Q3

REPORT INFORMATION
  Report Type: 
  Country: None (occurrence: None)
  Receive Date: 20090825
  Receipt Date: 20090812
  Transmission Date: 20100115
  Serious: Yes (Other)
  Sender: FDA-Public Use
  Company Number: PHHY2009CA34506

PATIENT
  Age: 46 Year
  Sex: Male

DRUGS (4)
  1. VOLTAREN [Suspect]
     Dosage: 150MG PER DAY
     Route: 065
     Dates: start: 19920101
  2. CELEBREX [Concomitant]
  3. NEXIUM [Concomitant]
     Indication: PROPHYLAXIS
  4. ZANTAC [Concomitant]
     Indication: PROPHYLAXIS

REACTIONS (2)
  - HIP ARTHROPLASTY [None]
  - SURGERY [None]
